FAERS Safety Report 18422043 (Version 1)
Quarter: 2020Q4

REPORT INFORMATION
  Report Type: Report from Study
  Country: IR (occurrence: IR)
  Receive Date: 20201023
  Receipt Date: 20201023
  Transmission Date: 20210114
  Serious: Yes (Other)
  Sender: FDA-Public Use
  Company Number: IR-GLAXOSMITHKLINE-IR2020GSK208043

PATIENT
  Age: 31 Year
  Sex: Female

DRUGS (10)
  1. FLUCONAZOLE. [Suspect]
     Active Substance: FLUCONAZOLE
     Indication: DERMATOPHYTOSIS
     Dosage: 150 MG, 1D
  2. ITRACONAZOLE. [Suspect]
     Active Substance: ITRACONAZOLE
     Dosage: 200 MG TWICE DAILY FOR ONE WEEK EACH MONTH
  3. TERBINAFINE. [Suspect]
     Active Substance: TERBINAFINE
     Indication: TRICHOPHYTOSIS
     Dosage: 250 MG, 1D
  4. SULFUR SOAP [Suspect]
     Active Substance: SULFUR
     Indication: PSORIASIS
     Dosage: UNK
  5. SERTACONAZOLE CREAM 2% [Suspect]
     Active Substance: SERTACONAZOLE
     Indication: TRICHOPHYTOSIS
     Dosage: UNK
  6. CLOTRIMAZOLE. [Suspect]
     Active Substance: CLOTRIMAZOLE
     Indication: DERMATOPHYTOSIS
     Dosage: UNK
  7. ITRACONAZOLE. [Suspect]
     Active Substance: ITRACONAZOLE
     Indication: TRICHOPHYTOSIS
     Dosage: 100 MG, BID
  8. METHOTREXATE TABLET [Suspect]
     Active Substance: METHOTREXATE
     Indication: PSORIASIS
     Dosage: 15 MG, WE
     Route: 048
  9. CLOTRIMAZOLE. [Suspect]
     Active Substance: CLOTRIMAZOLE
     Indication: PSORIASIS
  10. PREDNISOLONE. [Suspect]
     Active Substance: PREDNISOLONE
     Indication: PSORIASIS
     Dosage: 10 MG, 1D
     Route: 048

REACTIONS (3)
  - Drug ineffective [Unknown]
  - Pathogen resistance [Unknown]
  - Drug resistance [Unknown]
